FAERS Safety Report 12443128 (Version 1)
Quarter: 2016Q2

REPORT INFORMATION
  Report Type: Report from Study
  Country: US (occurrence: US)
  Receive Date: 20160607
  Receipt Date: 20160607
  Transmission Date: 20160815
  Serious: Yes (Hospitalization)
  Sender: FDA-Public Use
  Company Number: US-BIOGEN-2016BI00246437

PATIENT
  Sex: Female

DRUGS (1)
  1. TYSABRI [Suspect]
     Active Substance: NATALIZUMAB
     Indication: MULTIPLE SCLEROSIS
     Route: 065
     Dates: start: 20141219, end: 20160122

REACTIONS (4)
  - White blood cell count increased [Recovered/Resolved]
  - Viral infection [Recovered/Resolved]
  - Fall [Recovered/Resolved]
  - Lung disorder [Not Recovered/Not Resolved]
